FAERS Safety Report 7085884-3 (Version None)
Quarter: 2010Q4

REPORT INFORMATION
  Report Type: 
  Country: None (occurrence: None)
  Receive Date: 20101007
  Receipt Date: 20100806
  Transmission Date: 20110411
  Serious: No
  Sender: FDA-Public Use
  Company Number: 2010IP000090

PATIENT
  Age: 78 Year
  Sex: Male

DRUGS (4)
  1. BEPREVE [Suspect]
     Indication: DRY EYE
     Dosage: 1 GTT; BID; OPH
     Route: 047
     Dates: start: 20100707, end: 20100710
  2. BEPREVE [Suspect]
     Indication: EYE PRURITUS
     Dosage: 1 GTT; BID; OPH
     Route: 047
     Dates: start: 20100707, end: 20100710
  3. BEPREVE [Suspect]
     Indication: OCULAR HYPERAEMIA
     Dosage: 1 GTT; BID; OPH
     Route: 047
     Dates: start: 20100707, end: 20100710
  4. ATENOLOL [Concomitant]

REACTIONS (2)
  - EYE PAIN [None]
  - HEADACHE [None]
